FAERS Safety Report 4988618-9 (Version None)
Quarter: 2006Q2

REPORT INFORMATION
  Report Type: 
  Country: None (occurrence: None)
  Receive Date: 20060426
  Receipt Date: 20060405
  Transmission Date: 20061013
  Serious: Yes (Other)
  Sender: FDA-Public Use
  Company Number: ES200604001356

PATIENT
  Age: 14 Year
  Sex: Female

DRUGS (4)
  1. OLANZAPINE [Suspect]
     Indication: PSYCHOMOTOR HYPERACTIVITY
     Dosage: 2.5 MG, DAILY (1/D)
  2. VALPROATE SODIUM [Concomitant]
  3. DIAZEPAM [Concomitant]
  4. CLONAZEPAM [Concomitant]

REACTIONS (2)
  - DRUG INTERACTION [None]
  - PANCREATITIS [None]
